FAERS Safety Report 4615173-5 (Version None)
Quarter: 2005Q1

REPORT INFORMATION
  Report Type: 
  Country: None (occurrence: None)
  Receive Date: 20050322
  Receipt Date: 20050311
  Transmission Date: 20050727
  Serious: Yes (Hospitalization)
  Sender: FDA-Public Use
  Company Number: 2005JP000481

PATIENT
  Age: 45 Year
  Sex: Male

DRUGS (3)
  1. CEFAMEZIN [Suspect]
     Indication: ILL-DEFINED DISORDER
     Dosage: 2G PER DAY
     Route: 042
     Dates: start: 20050128, end: 20050201
  2. SEVOFLURANE [Concomitant]
     Indication: ILL-DEFINED DISORDER
     Route: 065
     Dates: start: 20050128, end: 20050128
  3. THIOPENTAL SODIUM [Concomitant]
     Indication: ILL-DEFINED DISORDER
     Route: 065
     Dates: start: 20050128, end: 20050128

REACTIONS (2)
  - JAUNDICE [None]
  - LIVER DISORDER [None]
